FAERS Safety Report 10240948 (Version 1)
Quarter: 2014Q2

REPORT INFORMATION
  Report Type: Spontaneous
  Country: US (occurrence: US)
  Receive Date: 20140617
  Receipt Date: 20140617
  Transmission Date: 20141212
  Serious: Yes (Hospitalization, Other)
  Sender: FDA-Public Use
  Company Number: US-ELI_LILLY_AND_COMPANY-US201406002398

PATIENT
  Age: 52 Year
  Sex: Male

DRUGS (3)
  1. HUMALOG LISPRO [Suspect]
     Indication: TYPE 2 DIABETES MELLITUS
     Dosage: UNK UNK, PRN
     Route: 065
     Dates: start: 2004
  2. HUMALOG 25% LISPRO, 75% NPL [Suspect]
     Indication: TYPE 2 DIABETES MELLITUS
     Dosage: UNK UNK, PRN
     Route: 065
     Dates: start: 2012
  3. LANTUS [Concomitant]

REACTIONS (9)
  - Bladder disorder [Unknown]
  - Pneumonia [Recovered/Resolved]
  - Malabsorption [Unknown]
  - Heart rate increased [Unknown]
  - Headache [Unknown]
  - Blood glucose increased [Unknown]
  - Visual impairment [Unknown]
  - Drug ineffective [Unknown]
  - Blood glucose increased [Unknown]
